FAERS Safety Report 8315382-8 (Version None)
Quarter: 2012Q2

REPORT INFORMATION
  Report Type: 
  Country: None (occurrence: None)
  Receive Date: 20120426
  Receipt Date: 20120417
  Transmission Date: 20120825
  Serious: Yes (Hospitalization)
  Sender: FDA-Public Use
  Company Number: GB-TEVA-333719ISR

PATIENT
  Sex: Female

DRUGS (4)
  1. SEROQUEL [Suspect]
     Route: 045
  2. CITALOPRAM HYDROBROMIDE [Concomitant]
  3. OLANZAPINE [Concomitant]
  4. QUETIAPINE [Suspect]
     Route: 048

REACTIONS (4)
  - WRONG DRUG ADMINISTERED [None]
  - CONVERSION DISORDER [None]
  - OVERDOSE [None]
  - INTENTIONAL DRUG MISUSE [None]
